FAERS Safety Report 8985154 (Version 2)
Quarter: 2013Q1

REPORT INFORMATION
  Report Type: Spontaneous
  Country: US (occurrence: US)
  Receive Date: 20121226
  Receipt Date: 20130131
  Transmission Date: 20140127
  Serious: Yes (Other)
  Sender: FDA-Public Use
  Company Number: US-BAYER-2012-133775

PATIENT
  Age: 28 Year
  Sex: Female

DRUGS (2)
  1. MIRENA [Suspect]
     Indication: ABDOMINAL PAIN LOWER
     Dosage: 20 MCG/24HR, CONT
     Route: 015
     Dates: start: 20121213
  2. MIRENA [Suspect]
     Indication: MENORRHAGIA

REACTIONS (6)
  - Malaise [None]
  - Pain [None]
  - Pyrexia [None]
  - Malaise [None]
  - Pelvic pain [None]
  - Vaginal haemorrhage [None]
